FAERS Safety Report 25851822 (Version 1)
Quarter: 2025Q3

REPORT INFORMATION
  Report Type: Other
  Country: US (occurrence: US)
  Receive Date: 20250926
  Receipt Date: 20250926
  Transmission Date: 20251021
  Serious: No
  Sender: SIGMA TAU
  Company Number: US-LEADIANT BIOSCIENCES, INC.-2025LBI000193

PATIENT
  Sex: Male

DRUGS (3)
  1. MATULANE [Suspect]
     Active Substance: PROCARBAZINE HYDROCHLORIDE
     Indication: Brain neoplasm malignant
     Route: 048
     Dates: start: 20241224
  2. VINCRISTINE [Suspect]
     Active Substance: VINCRISTINE
  3. LOMUSTINE [Suspect]
     Active Substance: LOMUSTINE

REACTIONS (7)
  - Dysarthria [Recovering/Resolving]
  - Fatigue [Recovering/Resolving]
  - Constipation [Unknown]
  - Hypoaesthesia [Unknown]
  - Neuropathy peripheral [Unknown]
  - Thrombocytopenia [Unknown]
  - Seizure [Unknown]
